FAERS Safety Report 20633500 (Version 1)
Quarter: 2022Q1

REPORT INFORMATION
  Report Type: Spontaneous
  Country: LB (occurrence: None)
  Receive Date: 20220324
  Receipt Date: 20220324
  Transmission Date: 20220423
  Serious: Yes (Other)
  Sender: FDA-Public Use
  Company Number: LB-ROCHE-3055495

PATIENT
  Age: 59 Year
  Sex: Female

DRUGS (1)
  1. OCREVUS [Suspect]
     Active Substance: OCRELIZUMAB
     Indication: Product used for unknown indication
     Dosage: DOT: JUN/2021, DEC/2021, MAR/2021; NEXT DOSE: JUN/2022
     Route: 065
     Dates: start: 202101

REACTIONS (2)
  - Urinary tract infection [Unknown]
  - Magnetic resonance imaging abnormal [Unknown]

NARRATIVE: CASE EVENT DATE: 20210901
